FAERS Safety Report 6205935-5 (Version None)
Quarter: 2009Q2

REPORT INFORMATION
  Report Type: 
  Country: None (occurrence: None)
  Receive Date: 20090527
  Receipt Date: 20090514
  Transmission Date: 20091009
  Serious: No
  Sender: FDA-Public Use
  Company Number: US-ABBOTT-09P-163-0573557-00

PATIENT
  Sex: Female
  Weight: 128.94 kg

DRUGS (12)
  1. SIMCOR [Suspect]
     Indication: BLOOD CHOLESTEROL INCREASED
     Dosage: 500MG/20MG-X2 AT HS
     Dates: start: 20090424
  2. ISOSORBID [Concomitant]
     Indication: DRUG USE FOR UNKNOWN INDICATION
  3. ASPIRIN [Concomitant]
     Indication: DRUG USE FOR UNKNOWN INDICATION
  4. PLAVIX [Concomitant]
     Indication: DRUG USE FOR UNKNOWN INDICATION
  5. RENEXA [Concomitant]
     Indication: DRUG USE FOR UNKNOWN INDICATION
  6. VIT D [Concomitant]
     Indication: DRUG USE FOR UNKNOWN INDICATION
  7. AMBIEN [Concomitant]
     Indication: DRUG USE FOR UNKNOWN INDICATION
  8. POTASSIUM CHLORIDE [Concomitant]
     Indication: DRUG USE FOR UNKNOWN INDICATION
  9. LASIX [Concomitant]
     Indication: DRUG USE FOR UNKNOWN INDICATION
  10. NEXIUM [Concomitant]
     Indication: DRUG USE FOR UNKNOWN INDICATION
  11. DIOVAN [Concomitant]
     Indication: DRUG USE FOR UNKNOWN INDICATION
  12. MORPHINE [Concomitant]
     Indication: DRUG USE FOR UNKNOWN INDICATION
     Dosage: PAIN PUMP
     Dates: start: 19800101

REACTIONS (6)
  - DYSPNOEA [None]
  - FATIGUE [None]
  - HEADACHE [None]
  - HYPERTENSION [None]
  - MEMORY IMPAIRMENT [None]
  - SKIN BURNING SENSATION [None]
